FAERS Safety Report 5777307-9 (Version None)
Quarter: 2008Q2

REPORT INFORMATION
  Report Type: 
  Country: None (occurrence: None)
  Receive Date: 20080618
  Receipt Date: 20080609
  Transmission Date: 20081010
  Serious: Yes (Other)
  Sender: FDA-Public Use
  Company Number: PHHY2008BR10588

PATIENT
  Age: 84 Year
  Sex: Male
  Weight: 55 kg

DRUGS (4)
  1. EXELON [Suspect]
     Indication: DEMENTIA ALZHEIMER'S TYPE
     Dosage: 1.5 MG, UNK
     Route: 048
  2. EXELON [Suspect]
     Dosage: 3 MG, UNK
     Route: 048
  3. EXELON [Suspect]
     Dosage: 4.5 MG, UNK
     Route: 048
  4. CAPTOPRIL [Concomitant]
     Dosage: 2 TABLETS/DAY
     Route: 048

REACTIONS (7)
  - ABASIA [None]
  - BLOOD PRESSURE FLUCTUATION [None]
  - DISTURBANCE IN SOCIAL BEHAVIOUR [None]
  - DIZZINESS [None]
  - NAUSEA [None]
  - TREMOR [None]
  - VERTIGO [None]
